FAERS Safety Report 11942552 (Version 1)
Quarter: 2016Q1

REPORT INFORMATION
  Report Type: Spontaneous
  Country: US (occurrence: US)
  Receive Date: 20160125
  Receipt Date: 20160125
  Transmission Date: 20160526
  Serious: No
  Sender: FDA-Public Use
  Company Number: US-UNITED THERAPEUTICS-UNT-2015-006517

PATIENT
  Sex: Male

DRUGS (3)
  1. ORENITRAM [Suspect]
     Active Substance: TREPROSTINIL
     Indication: PULMONARY ARTERIAL HYPERTENSION
     Dosage: 0.25 MG, TID
     Route: 048
     Dates: start: 20150521, end: 20150531
  2. ORENITRAM [Suspect]
     Active Substance: TREPROSTINIL
     Indication: PULMONARY HYPERTENSION
     Dosage: 0.25 MG, BID
     Route: 048
     Dates: start: 20150623
  3. ORENITRAM [Suspect]
     Active Substance: TREPROSTINIL
     Dosage: 0.125 MG, BID
     Dates: start: 20150515

REACTIONS (4)
  - Chest discomfort [Unknown]
  - Hypertension [Unknown]
  - Dyspnoea [Not Recovered/Not Resolved]
  - Chest pain [Unknown]

NARRATIVE: CASE EVENT DATE: 2015
